FAERS Safety Report 19181012 (Version 1)
Quarter: 2021Q2

REPORT INFORMATION
  Report Type: Report from Study
  Country: US (occurrence: US)
  Receive Date: 20210426
  Receipt Date: 20210426
  Transmission Date: 20210717
  Serious: Yes (Death)
  Sender: FDA-Public Use
  Company Number: US-ASTRAZENECA-2021A347805

PATIENT
  Age: 19015 Day
  Sex: Female

DRUGS (2)
  1. LYNPARZA [Suspect]
     Active Substance: OLAPARIB
     Indication: FALLOPIAN TUBE CANCER
     Dosage: TAKE 2 TABLETS BY MOUTH IN THE MORNING AND 1 TABLET IN THE EVENING
     Route: 048
     Dates: start: 20200813
  2. LYNPARZA [Suspect]
     Active Substance: OLAPARIB
     Indication: BREAST CANCER
     Dosage: TAKE 2 TABLETS BY MOUTH IN THE MORNING AND 1 TABLET IN THE EVENING
     Route: 048
     Dates: start: 20200813

REACTIONS (1)
  - Death [Fatal]

NARRATIVE: CASE EVENT DATE: 20210306
